FAERS Safety Report 10177628 (Version 1)
Quarter: 2014Q2

REPORT INFORMATION
  Report Type: Spontaneous
  Country: US (occurrence: US)
  Receive Date: 20140516
  Receipt Date: 20140516
  Transmission Date: 20141212
  Serious: No
  Sender: FDA-Public Use
  Company Number: US-SA-2014SA039354

PATIENT
  Sex: Male

DRUGS (1)
  1. SKLICE [Suspect]
     Indication: LICE INFESTATION
     Dosage: DOSE-.5% 4OZ?FORM-LOTION
     Route: 065

REACTIONS (1)
  - Alopecia [Unknown]
